FAERS Safety Report 10105452 (Version 2)
Quarter: 2014Q2

REPORT INFORMATION
  Report Type: Other
  Country: US (occurrence: US)
  Receive Date: 20140424
  Receipt Date: 20140611
  Transmission Date: 20141212
  Serious: Yes (Hospitalization, Other)
  Sender: FDA-Public Use
  Company Number: US-GSKPPD-2014GSK000541

PATIENT
  Age: 63 Year
  Sex: Female
  Weight: 86.26 kg

DRUGS (3)
  1. AVANDIA [Suspect]
     Indication: DIABETES MELLITUS
     Route: 048
     Dates: start: 2003
  2. METOPROLOL [Concomitant]
     Route: 048
  3. FENOFIBRATE [Concomitant]
     Route: 048

REACTIONS (4)
  - Coronary artery bypass [Recovered/Resolved]
  - Ischaemic cardiomyopathy [Recovered/Resolved]
  - Cardiac failure chronic [Recovered/Resolved]
  - Arteriosclerosis [Recovered/Resolved]
